FAERS Safety Report 7583051-8 (Version None)
Quarter: 2011Q2

REPORT INFORMATION
  Report Type: 
  Country: None (occurrence: None)
  Receive Date: 20110630
  Receipt Date: 20110622
  Transmission Date: 20111010
  Serious: No
  Sender: FDA-Public Use
  Company Number: US-MUTUAL PHARMACEUTICAL COMPANY, INC.-PNTM20110007

PATIENT
  Sex: Female
  Weight: 73.548 kg

DRUGS (3)
  1. LISINOPRIL [Concomitant]
     Indication: HYPERTENSION
     Route: 048
  2. ZOVIA 1/35E-21 [Concomitant]
     Indication: CONTRACEPTION
     Route: 048
  3. PHENTERMINE HYDROCHLORIDE [Suspect]
     Indication: WEIGHT DECREASED
     Route: 048

REACTIONS (1)
  - LENTICULAR OPACITIES [None]
